FAERS Safety Report 8743657 (Version 2)
Quarter: 2013Q1

REPORT INFORMATION
  Report Type: Spontaneous
  Country: FR (occurrence: FR)
  Receive Date: 20120824
  Receipt Date: 20130211
  Transmission Date: 20140127
  Serious: Yes (Life-Threatening)
  Sender: FDA-Public Use
  Company Number: FR-TEVA-354111ISR

PATIENT
  Age: 53 Year
  Sex: Male

DRUGS (4)
  1. ATORVASTATINE PFIZER [Suspect]
     Indication: ISCHAEMIC CARDIOMYOPATHY
     Dosage: 10 MILLIGRAM DAILY;
     Route: 048
     Dates: start: 20120601, end: 20120630
  2. MOLSIDOMINE [Concomitant]
     Dosage: 4 MILLIGRAM DAILY;
  3. DUOPLAVIN [Concomitant]
     Dosage: 1 TABLET DAILY;
  4. NEBIVOLOL [Concomitant]
     Dosage: 5 MILLIGRAM DAILY;

REACTIONS (1)
  - Pancreatitis necrotising [Recovered/Resolved with Sequelae]
